FAERS Safety Report 19933880 (Version 1)
Quarter: 2021Q4

REPORT INFORMATION
  Report Type: Spontaneous
  Country: US (occurrence: US)
  Receive Date: 20211008
  Receipt Date: 20211008
  Transmission Date: 20220303
  Serious: Yes (Other)
  Sender: FDA-Public Use
  Company Number: US-PFIZER INC-202101281385

PATIENT
  Age: 68 Year
  Sex: Female
  Weight: 92.08 kg

DRUGS (1)
  1. SULFASALAZINE [Suspect]
     Active Substance: SULFASALAZINE
     Indication: Ankylosing spondylitis
     Dosage: 1000 MG, 2X/DAY[TWO TABLETS IN THE MORNING AND TWO TABLETS IN THE EVENING]
     Route: 048

REACTIONS (4)
  - Choking [Unknown]
  - Dysphagia [Unknown]
  - Dyspnoea [Unknown]
  - Product use in unapproved indication [Unknown]

NARRATIVE: CASE EVENT DATE: 20210928
